FAERS Safety Report 9266850 (Version 1)
Quarter: 2013Q2

REPORT INFORMATION
  Report Type: Report from Study
  Country: DE (occurrence: DE)
  Receive Date: 20130502
  Receipt Date: 20130502
  Transmission Date: 20140414
  Serious: Yes (Other)
  Sender: FDA-Public Use
  Company Number: DE-ROCHE-1219595

PATIENT
  Age: 78 Year
  Sex: Male

DRUGS (1)
  1. VEMURAFENIB [Suspect]
     Indication: PRODUCT USED FOR UNKNOWN INDICATION
     Route: 065
     Dates: start: 201206, end: 201207

REACTIONS (4)
  - Electrocardiogram change [Unknown]
  - Fatigue [Unknown]
  - Sunburn [Unknown]
  - Skin papilloma [Unknown]
